FAERS Safety Report 7957040-5 (Version None)
Quarter: 2011Q4

REPORT INFORMATION
  Report Type: 
  Country: None (occurrence: None)
  Receive Date: 20111205
  Receipt Date: 20111205
  Transmission Date: 20120403
  Serious: Yes (Other)
  Sender: FDA-Public Use
  Company Number: None

PATIENT
  Sex: Male
  Weight: 27.215 kg

DRUGS (3)
  1. PREVACID [Concomitant]
  2. METOCLOPRAMIDE HYDROCHLORIDE [Suspect]
     Indication: IMPAIRED GASTRIC EMPTYING
     Dosage: 3MLS
     Route: 048
     Dates: start: 20111027, end: 20111206
  3. LOVAZA [Concomitant]

REACTIONS (10)
  - CHILLS [None]
  - NERVOUSNESS [None]
  - DISTURBANCE IN SOCIAL BEHAVIOUR [None]
  - DRUG INEFFECTIVE [None]
  - DISTURBANCE IN ATTENTION [None]
  - ANXIETY [None]
  - ROAD TRAFFIC ACCIDENT [None]
  - AGITATION [None]
  - RESTLESSNESS [None]
  - GAIT DISTURBANCE [None]
